FAERS Safety Report 20088061 (Version 1)
Quarter: 2021Q4

REPORT INFORMATION
  Report Type: Spontaneous
  Country: DE (occurrence: DE)
  Receive Date: 20211118
  Receipt Date: 20211118
  Transmission Date: 20220303
  Serious: Yes (Other)
  Sender: FDA-Public Use
  Company Number: DE-OTSUKA-2021_039107

PATIENT
  Sex: Female

DRUGS (6)
  1. TOLVAPTAN [Suspect]
     Active Substance: TOLVAPTAN
     Indication: Product used for unknown indication
     Dosage: 60 MG
     Route: 065
     Dates: start: 201510
  2. TOLVAPTAN [Suspect]
     Active Substance: TOLVAPTAN
     Dosage: 30 MG
     Route: 065
     Dates: start: 201510
  3. TOLVAPTAN [Suspect]
     Active Substance: TOLVAPTAN
     Dosage: 90 MG
     Route: 065
  4. TOLVAPTAN [Suspect]
     Active Substance: TOLVAPTAN
     Dosage: 30 MG
     Route: 065
  5. APIXABAN [Concomitant]
     Active Substance: APIXABAN
     Indication: Atrial fibrillation
     Dosage: UNK
     Route: 065
     Dates: start: 201707
  6. LOPERAMIDE [Concomitant]
     Active Substance: LOPERAMIDE
     Indication: Diarrhoea
     Dosage: UNK
     Route: 065
     Dates: start: 201704

REACTIONS (14)
  - Altered state of consciousness [Recovered/Resolved]
  - Atrial fibrillation [Unknown]
  - Deafness [Unknown]
  - Intracranial aneurysm [Unknown]
  - Uterine operation [Unknown]
  - Shoulder operation [Unknown]
  - Adverse drug reaction [Recovered/Resolved]
  - General physical health deterioration [Unknown]
  - Snoring [Unknown]
  - Heat illness [Unknown]
  - Sinusitis [Unknown]
  - Pyrexia [Unknown]
  - Nocturia [Unknown]
  - Thirst [Recovered/Resolved]

NARRATIVE: CASE EVENT DATE: 20151001
